FAERS Safety Report 6522502-4 (Version None)
Quarter: 2009Q4

REPORT INFORMATION
  Report Type: 
  Country: None (occurrence: None)
  Receive Date: 20091229
  Receipt Date: 20091229
  Transmission Date: 20100525
  Serious: Yes (Death)
  Sender: FDA-Public Use
  Company Number: None

PATIENT
  Age: 23 Year
  Sex: Female
  Weight: 123 kg

DRUGS (1)
  1. HEPARIN [Suspect]
     Indication: INTRACRANIAL VENOUS SINUS THROMBOSIS
     Dosage: 1250 UNITS/HR IV DRIP
     Route: 041
     Dates: start: 20091103, end: 20091104

REACTIONS (9)
  - BRAIN HERNIATION [None]
  - BRAIN OEDEMA [None]
  - CONFUSIONAL STATE [None]
  - HEADACHE [None]
  - INTRACRANIAL VENOUS SINUS THROMBOSIS [None]
  - MUSCLE TWITCHING [None]
  - RETINAL HAEMORRHAGE [None]
  - SUPERIOR SAGITTAL SINUS THROMBOSIS [None]
  - TRANSVERSE SINUS THROMBOSIS [None]
